FAERS Safety Report 13435850 (Version 1)
Quarter: 2017Q2

REPORT INFORMATION
  Report Type: Spontaneous
  Country: US (occurrence: US)
  Receive Date: 20170412
  Receipt Date: 20170412
  Transmission Date: 20170830
  Serious: Yes (Hospitalization)
  Sender: FDA-Public Use
  Company Number: None

PATIENT
  Age: 37 Year
  Sex: Female

DRUGS (1)
  1. OLD SPICE HIGH ENDURANCE PURE SPORT (ALUMINUM ZIRCONIUM TRICHLOROHYDREX GLY) [Suspect]
     Active Substance: ALUMINUM ZIRCONIUM TRICHLOROHYDREX GLY
     Route: 061
     Dates: end: 20170122

REACTIONS (9)
  - Skin exfoliation [None]
  - Pruritus [None]
  - Chemical burn of skin [None]
  - Skin disorder [None]
  - Furuncle [None]
  - Skin burning sensation [None]
  - Scar [None]
  - Rash erythematous [None]
  - Infection [None]
